FAERS Safety Report 6531324-X (Version None)
Quarter: 2010Q1

REPORT INFORMATION
  Report Type: 
  Country: None (occurrence: None)
  Receive Date: 20100108
  Receipt Date: 20091012
  Transmission Date: 20100710
  Serious: No
  Sender: FDA-Public Use
  Company Number: A0791785A

PATIENT
  Age: 66 Year
  Sex: Female

DRUGS (7)
  1. TYKERB [Suspect]
     Indication: BREAST CANCER
     Dosage: 2TAB PER DAY
     Route: 048
     Dates: start: 20090315, end: 20090401
  2. HERCEPTIN [Concomitant]
  3. FEMARA [Concomitant]
  4. AVAPRO [Concomitant]
  5. HYDROCHLOROTHIAZIDE [Concomitant]
  6. NORVASC [Concomitant]
  7. HYZAAR [Concomitant]

REACTIONS (7)
  - BLOOD PRESSURE INCREASED [None]
  - ERYTHEMA [None]
  - HEADACHE [None]
  - MUSCLE CONTRACTIONS INVOLUNTARY [None]
  - PAIN IN EXTREMITY [None]
  - RASH PRURITIC [None]
  - SKIN EXFOLIATION [None]
